FAERS Safety Report 25711972 (Version 2)
Quarter: 2025Q3

REPORT INFORMATION
  Report Type: Report from Study
  Country: US (occurrence: US)
  Receive Date: 20250821
  Receipt Date: 20250821
  Transmission Date: 20251020
  Serious: Yes (Death, Hospitalization, Other)
  Sender: PFIZER
  Company Number: US-PFIZER INC-202500104296

PATIENT
  Age: 38 Year
  Sex: Female
  Weight: 68.481 kg

DRUGS (4)
  1. TUKYSA [Suspect]
     Active Substance: TUCATINIB
     Indication: Breast cancer female
     Dosage: 300 MG, 1X/DAY
     Route: 048
     Dates: start: 20250515
  2. TUKYSA [Suspect]
     Active Substance: TUCATINIB
     Dosage: 150 MG, DAILY
     Route: 048
     Dates: start: 20250515
  3. TUKYSA [Suspect]
     Active Substance: TUCATINIB
     Dosage: 150 MG TWICE DAILY
  4. CAPECITABINE [Suspect]
     Active Substance: CAPECITABINE
     Indication: Breast cancer female
     Dosage: 500 MG, 2X/DAY
     Route: 048
     Dates: start: 20250515

REACTIONS (14)
  - Death [Fatal]
  - Dyspnoea [Unknown]
  - Breast cancer female [Not Recovered/Not Resolved]
  - Malignant neoplasm progression [Not Recovered/Not Resolved]
  - Pneumonia [Unknown]
  - Gait disturbance [Unknown]
  - Off label use [Unknown]
  - Nausea [Unknown]
  - Muscular weakness [Not Recovered/Not Resolved]
  - Malaise [Unknown]
  - Hypoaesthesia [Not Recovered/Not Resolved]
  - Fluid retention [Unknown]
  - Myalgia [Not Recovered/Not Resolved]
  - Bone pain [Not Recovered/Not Resolved]

NARRATIVE: CASE EVENT DATE: 20250101
